FAERS Safety Report 4892734-X (Version None)
Quarter: 2006Q1

REPORT INFORMATION
  Report Type: 
  Country: None (occurrence: None)
  Receive Date: 20060125
  Receipt Date: 20060125
  Transmission Date: 20060701
  Serious: Yes (Hospitalization)
  Sender: FDA-Public Use
  Company Number: None

PATIENT
  Sex: Female

DRUGS (9)
  1. QUININE SULFATE [Suspect]
     Indication: NEUROPATHY
     Dosage: 260MG  QHS  PO
     Route: 048
     Dates: start: 20051022
  2. ASPIRIN [Concomitant]
  3. LEVOTHYROXINE SODIUM [Concomitant]
  4. GABAPENTIN [Concomitant]
  5. OXYCODONE AND ACETAMINOPHEN [Concomitant]
  6. DOCUSATE SODIUM [Concomitant]
  7. SENNA [Concomitant]
  8. INSULIN [Concomitant]
  9. GLUCOSAMINE [Concomitant]

REACTIONS (2)
  - ABDOMINAL PAIN UPPER [None]
  - NAUSEA [None]
